FAERS Safety Report 14675395 (Version 1)
Quarter: 2018Q1

REPORT INFORMATION
  Report Type: Spontaneous
  Country: TH (occurrence: TH)
  Receive Date: 20180323
  Receipt Date: 20180323
  Transmission Date: 20180509
  Serious: Yes (Death)
  Sender: FDA-Public Use
  Company Number: TH-SA-2017SA151407

PATIENT
  Age: 50 Year
  Sex: Female
  Weight: 65 kg

DRUGS (1)
  1. THYMOGLOBULINE [Suspect]
     Active Substance: LAPINE T-LYMPHOCYTE IMMUNE GLOBULIN
     Indication: APLASTIC ANAEMIA
     Route: 042
     Dates: start: 20141220, end: 20141222

REACTIONS (3)
  - Hypertension [Fatal]
  - Dyspnoea [Fatal]
  - Cardiac arrest [Fatal]

NARRATIVE: CASE EVENT DATE: 20141222
